FAERS Safety Report 5564797-X (Version None)
Quarter: 2007Q4

REPORT INFORMATION
  Report Type: 
  Country: None (occurrence: None)
  Receive Date: 20071218
  Receipt Date: 20071213
  Transmission Date: 20080405
  Serious: Yes (Hospitalization)
  Sender: FDA-Public Use
  Company Number: JP-SP-2007-04224

PATIENT
  Age: 69 Year
  Sex: Male

DRUGS (1)
  1. IMMUCYST [Suspect]
     Indication: URINARY TRACT CARCINOMA IN SITU
     Route: 043
     Dates: start: 20070802, end: 20071115

REACTIONS (1)
  - PERINEAL ABSCESS [None]
